FAERS Safety Report 5368124-2 (Version None)
Quarter: 2007Q2

REPORT INFORMATION
  Report Type: 
  Country: None (occurrence: None)
  Receive Date: 20070619
  Receipt Date: 20070606
  Transmission Date: 20071010
  Serious: Yes (Hospitalization)
  Sender: FDA-Public Use
  Company Number: 2007-01814

PATIENT
  Age: 75 Year
  Sex: Female

DRUGS (1)
  1. VELCADE [Suspect]
     Indication: MULTIPLE MYELOMA
     Dosage: 1.30 MG/M2
     Dates: start: 20070514, end: 20070524

REACTIONS (6)
  - BLINDNESS UNILATERAL [None]
  - BONE PAIN [None]
  - FACE OEDEMA [None]
  - HYPONATRAEMIA [None]
  - PHARYNGEAL OEDEMA [None]
  - VISUAL ACUITY REDUCED [None]
